FAERS Safety Report 4816795-9 (Version None)
Quarter: 2005Q4

REPORT INFORMATION
  Report Type: 
  Country: None (occurrence: None)
  Receive Date: 20051028
  Receipt Date: 20051017
  Transmission Date: 20060501
  Serious: Yes (Hospitalization)
  Sender: FDA-Public Use
  Company Number: B0397896A

PATIENT
  Age: 42 Year
  Sex: Male

DRUGS (3)
  1. EPIVIR [Suspect]
     Indication: HIV INFECTION
  2. EFAVIRENZ          (EFAVIRENZ) [Suspect]
     Indication: HIV INFECTION
  3. STAVUDINE [Suspect]

REACTIONS (6)
  - ANOREXIA [None]
  - BLOOD PRESSURE DECREASED [None]
  - DYSPNOEA [None]
  - HEART RATE INCREASED [None]
  - HISTOPLASMOSIS DISSEMINATED [None]
  - RESPIRATORY RATE INCREASED [None]
